FAERS Safety Report 22015635 (Version 1)
Quarter: 2023Q1

REPORT INFORMATION
  Report Type: Spontaneous
  Country: US (occurrence: US)
  Receive Date: 20230221
  Receipt Date: 20230221
  Transmission Date: 20230418
  Serious: No
  Sender: FDA-Public Use
  Company Number: US-PHARMING-PHAUS2023000136

PATIENT

DRUGS (1)
  1. RUCONEST [Suspect]
     Active Substance: HUMAN C1-ESTERASE INHIBITOR
     Indication: Hereditary angioedema
     Dosage: 3850 IU, AS NEEDED
     Route: 042
     Dates: start: 20220420

REACTIONS (2)
  - Condition aggravated [Unknown]
  - COVID-19 [Unknown]
